FAERS Safety Report 4796465-6 (Version None)
Quarter: 2005Q4

REPORT INFORMATION
  Report Type: 
  Country: None (occurrence: None)
  Receive Date: 20051011
  Receipt Date: 20050316
  Transmission Date: 20060501
  Serious: Yes (Other)
  Sender: FDA-Public Use
  Company Number: 2005-03-1424

PATIENT

DRUGS (1)
  1. TEMODAR [Suspect]
     Dosage: 75MG/M2 QDX7D ORAL
     Route: 048

REACTIONS (1)
  - NEUTROPHIL COUNT DECREASED [None]
